FAERS Safety Report 12847334 (Version 1)
Quarter: 2016Q4

REPORT INFORMATION
  Report Type: Spontaneous
  Country: US (occurrence: US)
  Receive Date: 20161014
  Receipt Date: 20161014
  Transmission Date: 20170207
  Serious: No
  Sender: FDA-Public Use
  Company Number: US-GLAXOSMITHKLINE-US2016GSK150572

PATIENT
  Sex: Female

DRUGS (2)
  1. NICODERM CQ [Suspect]
     Active Substance: NICOTINE
     Indication: SMOKING CESSATION THERAPY
     Dosage: 21 MG, QD, 1 DOSAGE FORM
     Route: 061
     Dates: start: 201608, end: 201609
  2. HABITROL [Concomitant]
     Active Substance: NICOTINE
     Indication: SMOKING CESSATION THERAPY
     Dosage: 21 MG, UNK, ONCE DAY

REACTIONS (3)
  - Rash pruritic [Recovered/Resolved]
  - Product quality issue [Unknown]
  - Skin irritation [Recovered/Resolved]

NARRATIVE: CASE EVENT DATE: 2016
